FAERS Safety Report 9331713 (Version 1)
Quarter: 2013Q2

REPORT INFORMATION
  Report Type: Spontaneous
  Country: US (occurrence: US)
  Receive Date: 20130605
  Receipt Date: 20130605
  Transmission Date: 20140414
  Serious: Yes (Other)
  Sender: FDA-Public Use
  Company Number: US-BAYER-2013-066979

PATIENT
  Age: 26 Year
  Sex: Male
  Weight: 72.56 kg

DRUGS (3)
  1. BAYER GENUINE ASPIRIN ORIGINAL STRENGTH [Suspect]
     Indication: TOOTHACHE
     Dosage: 4 DF, EVERY 6 HOURS
     Route: 048
  2. BAYER GENUINE ASPIRIN ORIGINAL STRENGTH [Suspect]
     Indication: TOOTHACHE
     Dosage: 4 DF, EVERY 6 HOURS
     Route: 048
  3. NAPROXEN [Concomitant]

REACTIONS (3)
  - Hypoacusis [Not Recovered/Not Resolved]
  - Tinnitus [Not Recovered/Not Resolved]
  - Incorrect dose administered [None]
